FAERS Safety Report 12386096 (Version 2)
Quarter: 2017Q2

REPORT INFORMATION
  Report Type: Spontaneous
  Country: US (occurrence: US)
  Receive Date: 20160519
  Receipt Date: 20170531
  Transmission Date: 20170830
  Serious: Yes (Death, Other)
  Sender: FDA-Public Use
  Company Number: US-PFIZER INC-2016227550

PATIENT
  Age: 3 Year
  Sex: Female

DRUGS (3)
  1. ATROPINE SULFATE. [Suspect]
     Active Substance: ATROPINE SULFATE
     Indication: CORNEAL PERFORATION
     Dosage: 6 GTT, UNK
     Route: 047
  2. ATROPINE SULFATE. [Suspect]
     Active Substance: ATROPINE SULFATE
     Indication: CORNEAL PERFORATION
     Dosage: 0.1 MG, UNK
     Route: 058
  3. ATROPINE SULFATE. [Concomitant]
     Active Substance: ATROPINE SULFATE
     Indication: CORNEAL PERFORATION
     Dosage: 1.5 G OF 1% ATROPINE, UNK
     Route: 047

REACTIONS (5)
  - Nausea [Unknown]
  - Toxicity to various agents [Fatal]
  - Hyperpyrexia [Unknown]
  - Restlessness [Unknown]
  - Diarrhoea [Unknown]
